FAERS Safety Report 9454887 (Version 1)
Quarter: 2013Q3

REPORT INFORMATION
  Report Type: Spontaneous
  Country: US (occurrence: US)
  Receive Date: 20130813
  Receipt Date: 20130813
  Transmission Date: 20140515
  Serious: No
  Sender: FDA-Public Use
  Company Number: US-009507513-1307USA014551

PATIENT
  Age: 38 Year
  Sex: Female

DRUGS (12)
  1. REMERON [Suspect]
     Indication: ANXIETY
     Dosage: SPLIT TABLET, 7.5 MG, HS
     Route: 048
     Dates: start: 200311
  2. REMERON [Suspect]
     Indication: SLEEP DISORDER
  3. REMERON [Suspect]
     Indication: DEPRESSION
  4. DOXYCYCLINE [Concomitant]
  5. KLONOPIN [Concomitant]
  6. ACIPHEX [Concomitant]
  7. VENTOLIN (ALBUTEROL) [Concomitant]
  8. PULMICORT [Concomitant]
  9. VITAMIN D (UNSPECIFIED) [Concomitant]
  10. CYANOCOBALAMIN [Concomitant]
  11. CALCIUM (UNSPECIFIED) [Concomitant]
  12. MAGNESIUM (UNSPECIFIED) [Concomitant]

REACTIONS (9)
  - Dyspepsia [Recovered/Resolved]
  - Dyspnoea [Unknown]
  - Anxiety [Recovered/Resolved]
  - Back pain [Recovered/Resolved]
  - Hyperhidrosis [Recovered/Resolved]
  - Dizziness [Recovered/Resolved]
  - Product quality issue [Unknown]
  - Wrong technique in drug usage process [Unknown]
  - Underdose [Unknown]
